FAERS Safety Report 15439359 (Version 1)
Quarter: 2018Q3

REPORT INFORMATION
  Report Type: Spontaneous
  Country: US (occurrence: US)
  Receive Date: 20180924
  Receipt Date: 20180924
  Transmission Date: 20181010
  Serious: Yes (Disabling)
  Sender: FDA-Public Use
  Company Number: None

PATIENT
  Age: 78 Year
  Sex: Female
  Weight: 48.53 kg

DRUGS (1)
  1. VALSARTAN. [Suspect]
     Active Substance: VALSARTAN
     Indication: HYPERTENSION
     Dosage: ?          OTHER STRENGTH:160MG THEN 80 MG;QUANTITY:2 PILLS;OTHER FREQUENCY:TWICE DAILY; THEN;OTHER ROUTE: ONE 80 4 TIMES/DAY BY MOUTH?
     Dates: end: 20180801

REACTIONS (18)
  - Chills [None]
  - Eye irritation [None]
  - Dizziness [None]
  - Visual impairment [None]
  - Head discomfort [None]
  - Product substitution issue [None]
  - Arthralgia [None]
  - Musculoskeletal stiffness [None]
  - Muscle rigidity [None]
  - Posture abnormal [None]
  - Nasal congestion [None]
  - Vertigo [None]
  - Lip disorder [None]
  - Insomnia [None]
  - Headache [None]
  - Balance disorder [None]
  - Feeling cold [None]
  - Speech disorder [None]

NARRATIVE: CASE EVENT DATE: 20170101
